FAERS Safety Report 8947597 (Version 1)
Quarter: 2012Q4

REPORT INFORMATION
  Report Type: 
  Country: IT (occurrence: IT)
  Receive Date: 20121204
  Receipt Date: 20121204
  Transmission Date: 20130627
  Serious: Yes (Other)
  Sender: FDA-Public Use
  Company Number: IT-ROXANE LABORATORIES, INC.-2012-BI-01753GD

PATIENT
  Age: 7 Day
  Sex: Male
  Weight: 2.24 kg

DRUGS (6)
  1. MORPHINE [Suspect]
     Indication: DRUG WITHDRAWAL SYNDROME NEONATAL
     Dosage: 0.5 mg/kg/24h
     Route: 048
  2. MORPHINE [Suspect]
     Dosage: 0.7 mg/kg/24h
     Route: 048
  3. MORPHINE [Suspect]
     Dosage: 0.6 mg/kg/24h
     Route: 048
  4. MORPHINE [Suspect]
     Dosage: 0.4 mg/kg/24h
     Route: 048
  5. MORPHINE [Suspect]
     Dosage: 0.3 mg/kg/24h
     Route: 048
  6. ZIDOVUDINE [Concomitant]
     Indication: HUMAN IMMUNODEFICIENCY VIRUS TRANSMISSION
     Route: 048

REACTIONS (6)
  - Renal failure acute [Recovered/Resolved]
  - Hydronephrosis [Recovered/Resolved]
  - Bladder dilatation [Recovered/Resolved]
  - Urinary retention [Recovered/Resolved]
  - Hypotonia [Unknown]
  - Lethargy [Unknown]
